FAERS Safety Report 8549735-X (Version None)
Quarter: 2012Q3

REPORT INFORMATION
  Report Type: 
  Country: None (occurrence: None)
  Receive Date: 20120718
  Receipt Date: 20120709
  Transmission Date: 20120928
  Serious: Yes (Other)
  Sender: FDA-Public Use
  Company Number: AUR-APL-2012-02551

PATIENT
  Age: 53 Year
  Sex: Female
  Weight: 81.6475 kg

DRUGS (3)
  1. CLONAZEPAM [Concomitant]
  2. ESTRADIOL [Concomitant]
  3. FLUOXETINE [Suspect]
     Indication: DEPRESSION
     Dosage: (2 DOSAGE FORMS, 1 D), ORAL
     Route: 048
     Dates: start: 20120602

REACTIONS (12)
  - RETCHING [None]
  - PRODUCT QUALITY ISSUE [None]
  - DRUG WITHDRAWAL SYNDROME [None]
  - LETHARGY [None]
  - DIZZINESS [None]
  - DIARRHOEA [None]
  - PRODUCT FORMULATION ISSUE [None]
  - COLD SWEAT [None]
  - HEADACHE [None]
  - SEDATION [None]
  - DYSGEUSIA [None]
  - PALPITATIONS [None]
